FAERS Safety Report 21370135 (Version 1)
Quarter: 2022Q3

REPORT INFORMATION
  Report Type: Spontaneous
  Country: US (occurrence: US)
  Receive Date: 20220923
  Receipt Date: 20220923
  Transmission Date: 20221027
  Serious: Yes (Other)
  Sender: FDA-Public Use
  Company Number: US-ALVOGEN-2022-ALVOGEN-120890

PATIENT
  Age: 37 Year
  Sex: Female

DRUGS (4)
  1. BUPRENORPHINE [Suspect]
     Active Substance: BUPRENORPHINE
     Indication: Pelvic pain
     Route: 060
  2. BUPRENORPHINE\NALOXONE [Suspect]
     Active Substance: BUPRENORPHINE\NALOXONE
     Indication: Pelvic pain
     Dosage: 2-0.5 MG 1/4 FILM TWICE DAILY (AT WEEK 1)
     Route: 060
  3. OXYCODONE [Suspect]
     Active Substance: OXYCODONE
     Indication: Pelvic pain
     Dosage: 10 TO 15 MG EVERY FOUR HOURS AS NEEDED (MAXIMUM 50 MG/D)
  4. MORPHINE SULFATE [Suspect]
     Active Substance: MORPHINE SULFATE
     Indication: Pelvic pain
     Route: 048

REACTIONS (4)
  - Maternal exposure during pregnancy [Unknown]
  - Puerperal pyrexia [Unknown]
  - Tachycardia foetal [Unknown]
  - Gestational hypertension [Unknown]
